FAERS Safety Report 9449032 (Version 1)
Quarter: 2013Q3

REPORT INFORMATION
  Report Type: Spontaneous
  Country: DE (occurrence: None)
  Receive Date: 20130806
  Receipt Date: 20130806
  Transmission Date: 20140515
  Serious: Yes (Death)
  Sender: FDA-Public Use
  Company Number: 1823301

PATIENT
  Sex: 0

DRUGS (4)
  1. CARBOPLATIN [Suspect]
     Indication: NON-SMALL CELL LUNG CANCER STAGE III
     Dosage: AUC 6 DL, UNKNOWN
  2. VINORELBINE TARTRATE [Suspect]
     Indication: NON-SMALL CELL LUNG CANCER STAGE III
  3. OTHER THERAPEUTIC RADIOPHARMACEUTICALS [Concomitant]
  4. CISPLATIN [Concomitant]

REACTIONS (3)
  - Haemorrhage [None]
  - Infection [None]
  - Toxicity to various agents [None]
